FAERS Safety Report 4724765-4 (Version None)
Quarter: 2005Q3

REPORT INFORMATION
  Report Type: 
  Country: None (occurrence: None)
  Receive Date: 20050726
  Receipt Date: 20050719
  Transmission Date: 20060218
  Serious: Yes (Other)
  Sender: FDA-Public Use
  Company Number: GB-GLAXOSMITHKLINE-B0388145A

PATIENT

DRUGS (2)
  1. EPIVIR [Suspect]
     Indication: HIV INFECTION
  2. UNSPECIFIED MEDICATION [Concomitant]

REACTIONS (1)
  - DEAFNESS UNILATERAL [None]
